FAERS Safety Report 5900265-0 (Version None)
Quarter: 2008Q3

REPORT INFORMATION
  Report Type: 
  Country: None (occurrence: None)
  Receive Date: 20080926
  Receipt Date: 20080919
  Transmission Date: 20090109
  Serious: Yes (Hospitalization)
  Sender: FDA-Public Use
  Company Number: PHEH2008US08425

PATIENT
  Sex: Female

DRUGS (12)
  1. DYNACIRC CR [Suspect]
     Indication: HYPERTENSION
     Dosage: 10 MG, QD
     Route: 048
     Dates: start: 20070101, end: 20080907
  2. TOPROL-XL [Suspect]
     Dosage: 75 MG, UNK
     Route: 048
     Dates: start: 20050101
  3. PLAVIX [Concomitant]
  4. SPIRONOLACTONE [Concomitant]
  5. FUROSEMIDE [Concomitant]
  6. PANTOPRAZOLE SODIUM [Concomitant]
  7. HYDROCHLOROTHIAZIDE [Concomitant]
  8. POTASSIUM CHLORIDE [Concomitant]
  9. CYCLOBENZAPRINE HCL [Concomitant]
  10. XANAX [Concomitant]
  11. HYDROCODONE BITARTRATE [Concomitant]
  12. ALBUTEROL [Suspect]

REACTIONS (3)
  - HYPOXIA [None]
  - SKIN DISCOLOURATION [None]
  - THERAPEUTIC RESPONSE UNEXPECTED [None]
